FAERS Safety Report 5120053-5 (Version None)
Quarter: 2006Q3

REPORT INFORMATION
  Report Type: 
  Country: None (occurrence: None)
  Receive Date: 20060929
  Receipt Date: 20060922
  Transmission Date: 20061208
  Serious: Yes (Other)
  Sender: FDA-Public Use
  Company Number: GB-2006-017757

PATIENT
  Age: 17 Year
  Sex: Female

DRUGS (2)
  1. YASMIN [Suspect]
     Dosage: 1 TAB(S), ORAL
     Route: 048
     Dates: start: 20060101, end: 20060701
  2. TRIMETHOPRIM [Concomitant]

REACTIONS (8)
  - ABDOMINAL DISTENSION [None]
  - BREAST DISCOMFORT [None]
  - CONSTIPATION [None]
  - DEPRESSION [None]
  - HEADACHE [None]
  - PAIN IN EXTREMITY [None]
  - PSYCHIATRIC EVALUATION [None]
  - VOMITING [None]
